FAERS Safety Report 12294608 (Version 5)
Quarter: 2016Q2

REPORT INFORMATION
  Report Type: Spontaneous
  Country: GB (occurrence: GB)
  Receive Date: 20160422
  Receipt Date: 20160615
  Transmission Date: 20160815
  Serious: Yes (Other)
  Sender: FDA-Public Use
  Company Number: GB-AMGEN-GBRSP2016043388

PATIENT
  Age: 71 Year
  Sex: Female

DRUGS (9)
  1. APREPITANT. [Concomitant]
     Active Substance: APREPITANT
     Dosage: UNK
     Route: 065
  2. OMEPRAZOLE. [Concomitant]
     Active Substance: OMEPRAZOLE
     Dosage: UNK
  3. METOCLOPRAMIDE. [Concomitant]
     Active Substance: METOCLOPRAMIDE
     Dosage: UNK
  4. COCODAMOL [Concomitant]
     Active Substance: ACETAMINOPHEN\CODEINE PHOSPHATE
     Dosage: UNK
  5. DOCETAXEL. [Concomitant]
     Active Substance: DOCETAXEL
     Dosage: UNK
  6. FRUSEMIDE                          /00032601/ [Concomitant]
     Active Substance: FUROSEMIDE
     Dosage: UNK
     Route: 065
  7. THYROXINE [Concomitant]
     Active Substance: LEVOTHYROXINE
     Dosage: UNK
     Route: 065
  8. NEULASTA [Suspect]
     Active Substance: PEGFILGRASTIM
     Indication: PRODUCT USED FOR UNKNOWN INDICATION
     Dosage: UNK
     Route: 065
  9. DEXAMETHASONE. [Concomitant]
     Active Substance: DEXAMETHASONE
     Dosage: UNK

REACTIONS (27)
  - Panic reaction [Unknown]
  - Inflammation [Unknown]
  - Fatigue [Unknown]
  - Rectal haemorrhage [Unknown]
  - Inappropriate schedule of drug administration [Unknown]
  - Skin disorder [Unknown]
  - Oral pain [Unknown]
  - Pain [Unknown]
  - Gastritis [Unknown]
  - Facial pain [Recovering/Resolving]
  - Diarrhoea [Recovered/Resolved]
  - Dehydration [Unknown]
  - Confusional state [Unknown]
  - Decreased appetite [Unknown]
  - Ageusia [Unknown]
  - Arthralgia [Unknown]
  - Nausea [Unknown]
  - Impaired healing [Unknown]
  - Erythema [Unknown]
  - Oropharyngeal pain [Unknown]
  - Alopecia [Unknown]
  - Dyspnoea exertional [Unknown]
  - Constipation [Unknown]
  - Thyroid disorder [Unknown]
  - Flatulence [Unknown]
  - Weight decreased [Unknown]
  - Headache [Unknown]

NARRATIVE: CASE EVENT DATE: 20160413
